FAERS Safety Report 6526748-0 (Version None)
Quarter: 2009Q4

REPORT INFORMATION
  Report Type: 
  Country: None (occurrence: None)
  Receive Date: 20091214
  Receipt Date: 20081212
  Transmission Date: 20100525
  Serious: Yes (Hospitalization)
  Sender: FDA-Public Use
  Company Number: 603074

PATIENT
  Age: 52 Year
  Sex: Male

DRUGS (8)
  1. PEGASYS [Suspect]
     Indication: HEPATITIS C
     Dosage: 180 UG 1 PER WEEK
     Dates: start: 20081031, end: 20090126
  2. RIBAVIRIN [Suspect]
     Indication: HEPATITIS C
     Dosage: 1000 MG DAILY
     Dates: start: 20081031, end: 20090126
  3. BUSPAR [Concomitant]
  4. WELLBUTRIN [Concomitant]
  5. ROBAXIN [Concomitant]
  6. TALWIN [Concomitant]
  7. LIDOCAINE [Concomitant]
  8. NEXIUM [Concomitant]

REACTIONS (11)
  - BLOOD COUNT ABNORMAL [None]
  - CERVICAL VERTEBRAL FRACTURE [None]
  - CONTUSION [None]
  - DECREASED APPETITE [None]
  - DYSPNOEA [None]
  - FATIGUE [None]
  - HAEMORRHAGE [None]
  - KIDNEY INFECTION [None]
  - RESTLESSNESS [None]
  - ROAD TRAFFIC ACCIDENT [None]
  - STAPHYLOCOCCAL INFECTION [None]
